FAERS Safety Report 19766205 (Version 11)
Quarter: 2023Q2

REPORT INFORMATION
  Report Type: Report from Study
  Country: US (occurrence: US)
  Receive Date: 20210830
  Receipt Date: 20230508
  Transmission Date: 20230722
  Serious: Yes (Hospitalization, Other)
  Sender: FDA-Public Use
  Company Number: US-SHIRE-US202017078

PATIENT
  Sex: Female
  Weight: 83 kg

DRUGS (32)
  1. HUMAN IMMUNOGLOBULIN G\HYALURONIDASE RECOMBINANT HUMAN [Suspect]
     Active Substance: HUMAN IMMUNOGLOBULIN G\HYALURONIDASE RECOMBINANT HUMAN
     Indication: Primary immunodeficiency syndrome
     Dosage: 50 GRAM, Q4WEEKS
     Route: 058
     Dates: start: 20151228
  2. HUMAN IMMUNOGLOBULIN G\HYALURONIDASE RECOMBINANT HUMAN [Suspect]
     Active Substance: HUMAN IMMUNOGLOBULIN G\HYALURONIDASE RECOMBINANT HUMAN
     Indication: Immunodeficiency
  3. HUMAN IMMUNOGLOBULIN G\HYALURONIDASE RECOMBINANT HUMAN [Suspect]
     Active Substance: HUMAN IMMUNOGLOBULIN G\HYALURONIDASE RECOMBINANT HUMAN
     Indication: Hypogammaglobulinaemia
  4. DIPHENHYDRAMINE [Concomitant]
     Active Substance: DIPHENHYDRAMINE
  5. EPINEPHRINE [Concomitant]
     Active Substance: EPINEPHRINE
  6. SODIUM CHLORIDE [Concomitant]
     Active Substance: SODIUM CHLORIDE
  7. BUSPIRONE HCL [Concomitant]
     Active Substance: BUSPIRONE HYDROCHLORIDE
  8. BOTOX [Concomitant]
     Active Substance: ONABOTULINUMTOXINA
  9. INJECTAFER [Concomitant]
     Active Substance: FERRIC CARBOXYMALTOSE
  10. PROPRANOLOL HYDROCHLORIDE [Concomitant]
     Active Substance: PROPRANOLOL HYDROCHLORIDE
  11. TRAZODONE HCL [Concomitant]
     Active Substance: TRAZODONE HYDROCHLORIDE
  12. SYNTHROID [Concomitant]
     Active Substance: LEVOTHYROXINE SODIUM
  13. ASPIRIN [Concomitant]
     Active Substance: ASPIRIN
  14. ACETAMINOPHEN [Concomitant]
     Active Substance: ACETAMINOPHEN
  15. NUEDEXTA [Concomitant]
     Active Substance: DEXTROMETHORPHAN HYDROBROMIDE\QUINIDINE SULFATE
  16. ADDERALL [Concomitant]
     Active Substance: AMPHETAMINE ASPARTATE\AMPHETAMINE SULFATE\DEXTROAMPHETAMINE SACCHARATE\DEXTROAMPHETAMINE SULFATE
  17. NEXIUM [Concomitant]
     Active Substance: ESOMEPRAZOLE MAGNESIUM
  18. SEROQUEL [Concomitant]
     Active Substance: QUETIAPINE FUMARATE
  19. VITAMIN D [Concomitant]
     Active Substance: VITAMIN D NOS
     Route: 065
  20. NABUMETONE [Concomitant]
     Active Substance: NABUMETONE
     Route: 065
  21. ZYRTEC DAIICHI [Concomitant]
  22. Lmx [Concomitant]
     Route: 065
  23. DIFFERINE [Concomitant]
  24. PATANOL [Concomitant]
     Active Substance: OLOPATADINE HYDROCHLORIDE
  25. UNSPECIFIED INGREDIENT [Concomitant]
     Active Substance: UNSPECIFIED INGREDIENT
  26. DOK [Concomitant]
     Active Substance: DOCUSATE SODIUM
  27. CETIRIZINE HYDROCHLORIDE [Concomitant]
     Active Substance: CETIRIZINE HYDROCHLORIDE
  28. VITAMIN 15 [Concomitant]
  29. SODIUM CHLORIDE [Concomitant]
     Active Substance: SODIUM CHLORIDE
  30. VIIBRYD [Concomitant]
     Active Substance: VILAZODONE HYDROCHLORIDE
  31. LASIX [Concomitant]
     Active Substance: FUROSEMIDE
  32. DEXAMETHASONE [Concomitant]
     Active Substance: DEXAMETHASONE

REACTIONS (31)
  - Atelectasis [Unknown]
  - Gastroenteritis [Unknown]
  - Influenza [Unknown]
  - Delirium [Unknown]
  - Spinal fracture [Unknown]
  - Cerebrovascular accident [Unknown]
  - COVID-19 pneumonia [Unknown]
  - Red blood cell abnormality [Unknown]
  - Blood iron decreased [Recovering/Resolving]
  - Sinusitis [Unknown]
  - Asthenia [Unknown]
  - Palpitations [Unknown]
  - Weight increased [Unknown]
  - Postural orthostatic tachycardia syndrome [Unknown]
  - Fall [Unknown]
  - Illness [Unknown]
  - Haematoma [Unknown]
  - Root canal infection [Unknown]
  - Peripheral swelling [Unknown]
  - Dehydration [Unknown]
  - Allergy to chemicals [Unknown]
  - Seasonal allergy [Unknown]
  - Walking aid user [Unknown]
  - Back injury [Unknown]
  - Back pain [Not Recovered/Not Resolved]
  - Malaise [Unknown]
  - Brain fog [Not Recovered/Not Resolved]
  - Dyspnoea [Unknown]
  - Fatigue [Unknown]
  - Migraine [Not Recovered/Not Resolved]
  - Product dose omission issue [Unknown]
